FAERS Safety Report 10569664 (Version 1)
Quarter: 2014Q4

REPORT INFORMATION
  Report Type: Spontaneous
  Country: ES (occurrence: ES)
  Receive Date: 20141107
  Receipt Date: 20141107
  Transmission Date: 20150529
  Serious: Yes (Other)
  Sender: FDA-Public Use
  Company Number: ES-AUROBINDO-AUR-APL-2014-11421

PATIENT
  Age: 31 Year
  Sex: Female

DRUGS (4)
  1. AMOXICILLIN+CLAVULANIC ACID [Suspect]
     Active Substance: AMOXICILLIN\CLAVULANIC ACID
     Indication: EAR INFECTION
  2. KEFLORIDINA                        /00145501/ [Suspect]
     Active Substance: CEPHALEXIN
     Indication: EAR INFECTION
  3. KEFLORIDINA /00145501/ [Suspect]
     Active Substance: CEPHALEXIN
     Indication: SINUSITIS
     Dosage: 1 DF, EVERY 12 HOURS
     Route: 065
     Dates: start: 20141023
  4. AMOXICILLIN+CLAVULANIC ACID [Suspect]
     Active Substance: AMOXICILLIN\CLAVULANIC ACID
     Indication: SINUSITIS
     Dosage: UNK
     Route: 065
     Dates: start: 201410, end: 201410

REACTIONS (3)
  - Oedema mucosal [Not Recovered/Not Resolved]
  - Dizziness [Not Recovered/Not Resolved]
  - Drug ineffective [Recovered/Resolved]

NARRATIVE: CASE EVENT DATE: 201410
